FAERS Safety Report 24354555 (Version 1)
Quarter: 2024Q3

REPORT INFORMATION
  Report Type: Spontaneous
  Country: RU (occurrence: RU)
  Receive Date: 20240923
  Receipt Date: 20240923
  Transmission Date: 20241017
  Serious: Yes (Other)
  Sender: PFIZER
  Company Number: RU-PFIZER INC-PV202400123898

PATIENT
  Age: 51 Year
  Sex: Male

DRUGS (1)
  1. LORLATINIB [Suspect]
     Active Substance: LORLATINIB
     Dosage: 100 MG, 1X/DAY
     Route: 048
     Dates: start: 202209

REACTIONS (2)
  - Osteonecrosis [Recovering/Resolving]
  - Osteoarthritis [Recovering/Resolving]

NARRATIVE: CASE EVENT DATE: 20240501
